FAERS Safety Report 9525516 (Version 1)
Quarter: 2013Q3

REPORT INFORMATION
  Report Type: Spontaneous
  Country: US (occurrence: None)
  Receive Date: 20130913
  Receipt Date: 20130913
  Transmission Date: 20140515
  Serious: Yes (Other)
  Sender: FDA-Public Use
  Company Number: None

PATIENT
  Age: 63 Year
  Sex: Male

DRUGS (1)
  1. LEVOFLOXACIN [Suspect]
     Indication: INFECTION
     Dates: start: 20110402, end: 20110406

REACTIONS (6)
  - Rash [None]
  - Paraesthesia [None]
  - Hypoaesthesia [None]
  - Bradycardia [None]
  - Atrioventricular block [None]
  - Infusion related reaction [None]
